APPROVED DRUG PRODUCT: DOCEFREZ
Active Ingredient: DOCETAXEL
Strength: 20MG/VIAL
Dosage Form/Route: INJECTABLE;INJECTION
Application: N022534 | Product #001
Applicant: SUN PHARMACEUTICAL INDUSTRIES LTD
Approved: May 3, 2011 | RLD: Yes | RS: No | Type: DISCN